FAERS Safety Report 14556812 (Version 1)
Quarter: 2018Q1

REPORT INFORMATION
  Report Type: Spontaneous
  Country: US (occurrence: US)
  Receive Date: 20180221
  Receipt Date: 20180221
  Transmission Date: 20180509
  Serious: No
  Sender: FDA-Public Use
  Company Number: US-PFIZER INC-2018074783

PATIENT
  Sex: Female

DRUGS (2)
  1. FLECAINIDE ACETATE. [Interacting]
     Active Substance: FLECAINIDE ACETATE
     Dosage: TWO TABLETS TWICE A DAY
  2. ADVIL [Suspect]
     Active Substance: IBUPROFEN
     Dosage: TWO ADVILS

REACTIONS (3)
  - Drug interaction [Unknown]
  - Nausea [Unknown]
  - Dizziness [Unknown]

NARRATIVE: CASE EVENT DATE: 20180218
